FAERS Safety Report 8342790-1 (Version None)
Quarter: 2012Q2

REPORT INFORMATION
  Report Type: 
  Country: None (occurrence: None)
  Receive Date: 20120508
  Receipt Date: 20120427
  Transmission Date: 20120825
  Serious: Yes (Hospitalization)
  Sender: FDA-Public Use
  Company Number: JP-VERTEX PHARMACEUTICALS INC.-AE-2012-006002

PATIENT
  Age: 63 Year
  Sex: Male

DRUGS (5)
  1. TELAVIC (TELAPREVIR) [Suspect]
     Indication: HEPATITIS C
     Route: 048
     Dates: start: 20120316, end: 20120414
  2. REBETOL [Concomitant]
     Route: 048
     Dates: start: 20120329, end: 20120401
  3. REBETOL [Concomitant]
     Route: 048
     Dates: start: 20120402, end: 20120419
  4. REBETOL [Concomitant]
     Indication: HEPATITIS C
     Route: 048
     Dates: start: 20120316, end: 20120328
  5. PEG-INTRON [Concomitant]
     Indication: HEPATITIS C
     Route: 058
     Dates: start: 20120316

REACTIONS (1)
  - DRUG ERUPTION [None]
